FAERS Safety Report 12429249 (Version 1)
Quarter: 2016Q2

REPORT INFORMATION
  Report Type: Spontaneous
  Country: US (occurrence: US)
  Receive Date: 20160602
  Receipt Date: 20160602
  Transmission Date: 20160815
  Serious: Yes (Other)
  Sender: FDA-Public Use
  Company Number: US-ASTRAZENECA-2016SE57350

PATIENT
  Sex: Female

DRUGS (3)
  1. PULMICORT FLEXHALER [Suspect]
     Active Substance: BUDESONIDE
     Dosage: 180 MCG 1 PUFF TWO TIMES A DAY
     Route: 055
  2. PREDNISONE. [Concomitant]
     Active Substance: PREDNISONE
     Indication: PULMONARY OEDEMA
     Route: 048
     Dates: start: 20151110
  3. PROAIR INHALER [Concomitant]
     Indication: ASTHMA

REACTIONS (4)
  - Intentional product misuse [Unknown]
  - Pulmonary oedema [Unknown]
  - Product quality issue [Unknown]
  - Drug dose omission [Unknown]
